FAERS Safety Report 5350970-2 (Version None)
Quarter: 2007Q2

REPORT INFORMATION
  Report Type: 
  Country: None (occurrence: None)
  Receive Date: 20070606
  Receipt Date: 20070529
  Transmission Date: 20071010
  Serious: Yes (Other)
  Sender: FDA-Public Use
  Company Number: CIP07000989

PATIENT
  Age: 80 Year
  Sex: Female

DRUGS (3)
  1. ACTONEL [Suspect]
     Dosage: 35 MG ONCE WEEKLY, ORAL
     Route: 048
     Dates: start: 20050101
  2. CALTRATE /00108001/(CALCIUM CARBONATE) [Concomitant]
  3. MULTI-VITAMIN [Concomitant]

REACTIONS (1)
  - DEAFNESS [None]
